APPROVED DRUG PRODUCT: GATIFLOXACIN
Active Ingredient: GATIFLOXACIN
Strength: 0.3%
Dosage Form/Route: SOLUTION/DROPS;OPHTHALMIC
Application: A079084 | Product #001
Applicant: APOTEX INC
Approved: Aug 19, 2011 | RLD: No | RS: No | Type: DISCN